FAERS Safety Report 7908012-8 (Version None)
Quarter: 2011Q4

REPORT INFORMATION
  Report Type: 
  Country: None (occurrence: None)
  Receive Date: 20111110
  Receipt Date: 20111101
  Transmission Date: 20120403
  Serious: Yes (Hospitalization)
  Sender: FDA-Public Use
  Company Number: KR-ASTRAZENECA-2011SE65956

PATIENT
  Sex: Female

DRUGS (4)
  1. CRESTOR [Suspect]
     Indication: TYPE V HYPERLIPIDAEMIA
     Route: 048
     Dates: start: 20041201
  2. CARVEDILOL [Concomitant]
     Route: 048
     Dates: start: 20041201
  3. COUMADIN [Concomitant]
     Route: 048
     Dates: start: 20041201
  4. DISGREN [Concomitant]
     Route: 048
     Dates: start: 20041201

REACTIONS (2)
  - HAEMATEMESIS [None]
  - ABDOMINAL PAIN UPPER [None]
